FAERS Safety Report 6747931-5 (Version None)
Quarter: 2010Q2

REPORT INFORMATION
  Report Type: 
  Country: None (occurrence: None)
  Receive Date: 20100528
  Receipt Date: 20100525
  Transmission Date: 20101027
  Serious: Yes (Death, Life-Threatening, Hospitalization, Other)
  Sender: FDA-Public Use
  Company Number: US-ELI_LILLY_AND_COMPANY-US201005004172

PATIENT
  Sex: Female
  Weight: 53.515 kg

DRUGS (27)
  1. GEMZAR [Suspect]
     Indication: DIFFUSE LARGE B-CELL LYMPHOMA
     Dosage: 800 MG, DAYS 2 AND 15
     Route: 042
     Dates: start: 20100210
  2. OXALIPLATIN [Concomitant]
     Indication: DIFFUSE LARGE B-CELL LYMPHOMA
     Dosage: 80 MG, DAYS 2 AND 15
     Route: 042
     Dates: start: 20100210
  3. RITUXIMAB [Concomitant]
     Indication: DIFFUSE LARGE B-CELL LYMPHOMA
     Dosage: 600 MG, DAY 1
     Dates: start: 20100209
  4. NEULASTA [Concomitant]
     Dosage: 6 MG, DAY 3
     Route: 058
     Dates: start: 20100211
  5. DECADRON [Concomitant]
     Indication: PREMEDICATION
     Dosage: 20 MG, DAYS 1, 2, AND 15
     Dates: start: 20100209
  6. BENADRYL [Concomitant]
     Indication: PREMEDICATION
     Dosage: 25 MG, DAYS 1,2 AND 15
     Dates: start: 20100902
  7. ZANTAC [Concomitant]
     Indication: PREMEDICATION
     Dosage: 50 MG, DAYS 1,2, AND 15
     Route: 042
     Dates: start: 20100209
  8. KYTRIL [Concomitant]
     Indication: PREMEDICATION
     Dosage: 1 MG, DAYS 1, 2, AND 15
     Route: 042
     Dates: start: 20100209
  9. COUMADIN [Concomitant]
     Indication: INTRACARDIAC THROMBUS
     Dosage: 4 MG, MON, WED, FRI
     Route: 048
  10. COUMADIN [Concomitant]
     Dosage: 3 MG, TUES, THURS, SAT, SUN
     Route: 048
  11. COUMADIN [Concomitant]
     Dosage: 4 MG, DAILY (1/D)
     Route: 048
     Dates: start: 20100305
  12. PAMELOR [Concomitant]
     Dosage: 25 MG, EACH EVENING
     Route: 048
  13. ALDACTONE [Concomitant]
     Dosage: 25 MG, DAILY (1/D)
     Route: 048
  14. LASIX [Concomitant]
     Dosage: 40 MG, DAILY (1/D)
     Route: 048
  15. K-DUR [Concomitant]
     Dosage: 40 MEQ, DAILY (1/D)
     Route: 048
  16. DARVOCET-N 100 [Concomitant]
     Dosage: 1 D/F, EACH EVENING
     Route: 048
  17. EFFEXOR [Concomitant]
     Dosage: 75 MG, EACH EVENING
     Route: 048
     Dates: start: 20100310
  18. CELEXA [Concomitant]
     Dosage: 10 MG, EACH EVENING
     Route: 048
  19. RESTASIS [Concomitant]
     Dosage: 1 GTT, DAILY (1/D)
     Route: 047
  20. ALPHAGAN [Concomitant]
     Dosage: 1 GTT, 3/D LEFT EYE
     Route: 047
  21. COSOPT [Concomitant]
     Dosage: 1 GTT, 2/D
     Route: 047
  22. TRAVATAN [Concomitant]
     Dosage: 1 GTT, EACH EVENING
     Route: 047
  23. ERYTHROMYCIN OPTHALMIC OINTMENT USP 23 [Concomitant]
     Dosage: UNK, EACH EVENING
     Route: 047
  24. CULTURELLE [Concomitant]
     Indication: SUPPLEMENTATION THERAPY
     Dosage: 1 D/F, DAILY (1/D)
  25. MAGNESIUM OXIDE [Concomitant]
     Dosage: 400 MG, DAILY (1/D)
     Route: 048
  26. CARDIZEM [Concomitant]
     Indication: RESUSCITATION
     Dosage: 10 MG, UNK
     Route: 040
     Dates: start: 20100312, end: 20100312
  27. CARDIZEM [Concomitant]
     Dosage: 20 MG, EVERY HOUR
     Route: 042
     Dates: start: 20100312

REACTIONS (16)
  - ASTHENIA [None]
  - ATRIAL FIBRILLATION [None]
  - CARDIAC ARREST [None]
  - CHILLS [None]
  - COUGH [None]
  - DEATH [None]
  - DECREASED APPETITE [None]
  - DYSPNOEA [None]
  - HOT FLUSH [None]
  - HYPERHIDROSIS [None]
  - INFECTION [None]
  - LEUKOCYTOSIS [None]
  - OFF LABEL USE [None]
  - PYREXIA [None]
  - TACHYCARDIA [None]
  - THROMBOCYTOPENIA [None]
